FAERS Safety Report 24546361 (Version 1)
Quarter: 2024Q4

REPORT INFORMATION
  Report Type: Other
  Country: US (occurrence: US)
  Receive Date: 20241024
  Receipt Date: 20241024
  Transmission Date: 20250115
  Serious: Yes (Other)
  Sender: EVEREST LIFE SCIENCES LLC
  Company Number: US-Everest Life Sciences LLC-2163323

PATIENT
  Age: 49 Year
  Sex: Female

DRUGS (12)
  1. DAPSONE [Suspect]
     Active Substance: DAPSONE
     Indication: Chronic spontaneous urticaria
  2. CIMETIDINE [Concomitant]
     Active Substance: CIMETIDINE
  3. SULFASALAZINE [Concomitant]
     Active Substance: SULFASALAZINE
  4. MYCOPHENOLATE MOFETIL [Concomitant]
     Active Substance: MYCOPHENOLATE MOFETIL
  5. HYDROXYCHLOROQUINE SULFATE [Concomitant]
     Active Substance: HYDROXYCHLOROQUINE SULFATE
  6. CYCLOSPORINE [Concomitant]
     Active Substance: CYCLOSPORINE
  7. OMALIZUMAB [Concomitant]
     Active Substance: OMALIZUMAB
  8. LEVOCETIRIZINE DIHYDROCHLORIDE [Concomitant]
     Active Substance: LEVOCETIRIZINE DIHYDROCHLORIDE
  9. HYDROXYZINE [Concomitant]
     Active Substance: HYDROXYZINE HYDROCHLORIDE
  10. FEXOFENADINE [Concomitant]
     Active Substance: FEXOFENADINE HYDROCHLORIDE
  11. DIPHENHYDRAMINE [Concomitant]
     Active Substance: DIPHENHYDRAMINE
  12. CETIRIZINE [Concomitant]
     Active Substance: CETIRIZINE HYDROCHLORIDE

REACTIONS (2)
  - Leukopenia [Unknown]
  - Product use in unapproved indication [Unknown]
